FAERS Safety Report 7612829-7 (Version None)
Quarter: 2011Q3

REPORT INFORMATION
  Report Type: 
  Country: None (occurrence: None)
  Receive Date: 20110708
  Receipt Date: 20110623
  Transmission Date: 20111222
  Serious: Yes (Other)
  Sender: FDA-Public Use
  Company Number: 2011AP000481

PATIENT
  Age: 31 Year
  Sex: Female

DRUGS (2)
  1. VALPROATE SODIUM [Suspect]
     Indication: MENTAL DISORDER
     Dosage: 1 TAB; TAB; TAB; PO; QD; 1 TAB; QD; PO
     Route: 048
  2. ROSPERIDONE (RISPERIDONE) [Concomitant]

REACTIONS (2)
  - PROTEINURIA [None]
  - BLOOD CREATININE INCREASED [None]
